FAERS Safety Report 4704760-1 (Version None)
Quarter: 2005Q2

REPORT INFORMATION
  Report Type: 
  Country: None (occurrence: None)
  Receive Date: 20050630
  Receipt Date: 20050620
  Transmission Date: 20051028
  Serious: Yes (Other)
  Sender: FDA-Public Use
  Company Number: TPA2005A00710

PATIENT
  Age: 65 Year
  Sex: Female

DRUGS (2)
  1. ACTOS [Suspect]
     Dosage: 30 MG, 1 IN 1 D, PER ORAL
     Route: 048
  2. PRINZIDE [Concomitant]

REACTIONS (1)
  - ANGIONEUROTIC OEDEMA [None]
